FAERS Safety Report 4997045-X (Version None)
Quarter: 2006Q2

REPORT INFORMATION
  Report Type: 
  Country: None (occurrence: None)
  Receive Date: 20060505
  Receipt Date: 20060426
  Transmission Date: 20061013
  Serious: Yes (Death, Hospitalization)
  Sender: FDA-Public Use
  Company Number: 2006BI001024

PATIENT
  Age: 60 Year
  Sex: Female

DRUGS (7)
  1. AVONEX [Suspect]
     Indication: MULTIPLE SCLEROSIS
     Dosage: IM
     Route: 030
     Dates: start: 19960101, end: 20040129
  2. WELLBUTRIN [Concomitant]
  3. CELEBREX [Concomitant]
  4. KLONOPIN [Concomitant]
  5. LEXAPRO [Concomitant]
  6. FLONASE [Concomitant]
  7. NEURONTIN [Concomitant]

REACTIONS (4)
  - HYPOXIA [None]
  - MULTIPLE SCLEROSIS [None]
  - PNEUMONIA [None]
  - RESPIRATORY FAILURE [None]
